FAERS Safety Report 7132719-6 (Version None)
Quarter: 2010Q4

REPORT INFORMATION
  Report Type: 
  Country: None (occurrence: None)
  Receive Date: 20101129
  Receipt Date: 20101129
  Transmission Date: 20110411
  Serious: Yes (Hospitalization)
  Sender: FDA-Public Use
  Company Number: None

PATIENT
  Sex: Female

DRUGS (1)
  1. FOSAMAX [Suspect]
     Indication: OSTEOPOROSIS
     Dosage: FOSAMAX PO
     Route: 048

REACTIONS (4)
  - FALL [None]
  - FEMORAL NECK FRACTURE [None]
  - FRACTURE NONUNION [None]
  - STRESS FRACTURE [None]
